FAERS Safety Report 16905582 (Version 2)
Quarter: 2020Q1

REPORT INFORMATION
  Report Type: Other
  Country: US (occurrence: UM)
  Receive Date: 20191010
  Receipt Date: 20200205
  Transmission Date: 20200409
  Serious: Yes (Death, Hospitalization, Other)
  Sender: FDA-Public Use
  Company Number: US-AMAG PHARMACEUTICALS, INC.-AMAG201905292

PATIENT
  Age: 0 Year
  Sex: Male
  Weight: 1.38 kg

DRUGS (1)
  1. MAKENA [Suspect]
     Active Substance: HYDROXYPROGESTERONE CAPROATE
     Indication: FOETAL EXPOSURE DURING PREGNANCY
     Dosage: 250MG/ML, WEEKLY
     Route: 064
     Dates: start: 20190710, end: 20191001

REACTIONS (7)
  - Foetal hypokinesia [Unknown]
  - Renal failure neonatal [Unknown]
  - Neonatal respiratory distress [Unknown]
  - Intraventricular haemorrhage neonatal [Unknown]
  - Foetal heart rate deceleration abnormality [Unknown]
  - Premature baby [Recovered/Resolved]
  - Sepsis neonatal [Fatal]

NARRATIVE: CASE EVENT DATE: 201910
